FAERS Safety Report 9475554 (Version 2)
Quarter: 2013Q3

REPORT INFORMATION
  Report Type: Report from Study
  Country: DE (occurrence: DE)
  Receive Date: 20130826
  Receipt Date: 20130830
  Transmission Date: 20140515
  Serious: Yes (Hospitalization)
  Sender: FDA-Public Use
  Company Number: DE-ROCHE-1265531

PATIENT
  Age: 53 Year
  Sex: Male
  Weight: 93 kg

DRUGS (14)
  1. TOCILIZUMAB [Suspect]
     Indication: RHEUMATOID ARTHRITIS
     Route: 065
     Dates: start: 201202, end: 20120503
  2. RITUXIMAB [Suspect]
     Indication: RHEUMATOID ARTHRITIS
     Route: 065
     Dates: start: 20120608
  3. METHOTREXATE [Concomitant]
     Indication: RHEUMATOID ARTHRITIS
     Route: 065
     Dates: start: 201206
  4. METHOTREXATE [Concomitant]
     Route: 065
     Dates: start: 201008, end: 201009
  5. PREDNISOLON [Concomitant]
     Route: 065
     Dates: start: 201008
  6. SIMVASTATIN [Concomitant]
     Route: 065
     Dates: start: 2010
  7. BISOPROLOL [Concomitant]
     Route: 065
     Dates: start: 2010
  8. RAMIPRIL [Concomitant]
     Route: 065
     Dates: start: 2010
  9. ALENDRONIC ACID [Concomitant]
     Route: 065
     Dates: start: 201202
  10. ASS [Concomitant]
  11. TILIDIN [Concomitant]
  12. NALOXON [Concomitant]
  13. PANTOPRAZOL [Concomitant]
  14. IBUPROFEN [Concomitant]

REACTIONS (1)
  - Rheumatoid arthritis [Recovered/Resolved]
